FAERS Safety Report 12468865 (Version 2)
Quarter: 2016Q3

REPORT INFORMATION
  Report Type: Spontaneous
  Country: JP (occurrence: JP)
  Receive Date: 20160615
  Receipt Date: 20160804
  Transmission Date: 20161109
  Serious: Yes (Death, Hospitalization)
  Sender: FDA-Public Use
  Company Number: JP-MYLANLABS-2016M1024389

PATIENT

DRUGS (1)
  1. PREDNISOLONE. [Suspect]
     Active Substance: PREDNISOLONE
     Indication: TROPICAL SPASTIC PARESIS
     Dosage: 3 MG, QD
     Route: 048

REACTIONS (2)
  - Sepsis [Fatal]
  - Hypopituitarism [Fatal]
